FAERS Safety Report 5368778-0 (Version None)
Quarter: 2007Q2

REPORT INFORMATION
  Report Type: 
  Country: None (occurrence: None)
  Receive Date: 20070621
  Receipt Date: 20070621
  Transmission Date: 20071010
  Serious: Yes (Hospitalization)
  Sender: FDA-Public Use
  Company Number: None

PATIENT
  Sex: Male
  Weight: 108 kg

DRUGS (6)
  1. TEMOZOLOMIDE [Suspect]
     Dosage: 4760 MG
  2. CLEXANE [Concomitant]
  3. ENOLADEX [Concomitant]
  4. NORMITEN [Concomitant]
  5. RESPRIM [Concomitant]
  6. TEGRETOL [Concomitant]

REACTIONS (3)
  - HYPERSENSITIVITY [None]
  - PYREXIA [None]
  - RASH [None]
